FAERS Safety Report 6218009-4 (Version None)
Quarter: 2009Q2

REPORT INFORMATION
  Report Type: 
  Country: None (occurrence: None)
  Receive Date: 20090608
  Receipt Date: 20090603
  Transmission Date: 20091009
  Serious: Yes (Other)
  Sender: FDA-Public Use
  Company Number: US-BAYER-200919608NA

PATIENT
  Age: 59 Year
  Sex: Female
  Weight: 106 kg

DRUGS (26)
  1. MAGNEVIST [Suspect]
     Indication: ANGIOGRAM
     Dates: start: 20040612, end: 20040612
  2. MAGNEVIST [Suspect]
     Dates: start: 20050101, end: 20050101
  3. MAGNEVIST [Suspect]
     Dosage: THIS ADMINISTRATION REFERENCED IN SUMMONS
     Dates: start: 20041105, end: 20041105
  4. ACETAMINOPHEN AND CODEINE PHOSPHATE [Concomitant]
  5. SYNTHROID [Concomitant]
  6. GABAPENTIN [Concomitant]
  7. TYLENOL W/ CODEINE [Concomitant]
  8. HYDROXYZINE HCL [Concomitant]
  9. TOPROL-XL [Concomitant]
  10. LEXAPRO [Concomitant]
  11. ASPIRIN [Concomitant]
  12. EPOGEN WITH HD [Concomitant]
  13. DEMADEX [Concomitant]
  14. PHOSLO [Concomitant]
     Dates: start: 20050331
  15. CALCIJEX [Concomitant]
     Dosage: WITH HD
     Route: 042
  16. FERRLECIT [Concomitant]
     Dosage: WITH HD
     Route: 042
  17. LOVENOX [Concomitant]
     Route: 058
     Dates: start: 20050301
  18. CLONIDINE [Concomitant]
  19. RENAGEL [Concomitant]
     Dates: start: 20050331
  20. TAPAZOLE [Concomitant]
  21. PREVACID [Concomitant]
  22. ZOFRAN [Concomitant]
  23. IMODIUM [Concomitant]
  24. MAALOX [Concomitant]
  25. TPN [Concomitant]
     Dosage: WITH DIALYSIS
     Dates: start: 20050601
  26. ATARAX [Concomitant]

REACTIONS (14)
  - FIBROSIS [None]
  - GAIT DISTURBANCE [None]
  - GRIP STRENGTH DECREASED [None]
  - HYPERKERATOSIS [None]
  - JOINT SWELLING [None]
  - NEPHROGENIC SYSTEMIC FIBROSIS [None]
  - OEDEMA PERIPHERAL [None]
  - PAIN [None]
  - PAIN IN EXTREMITY [None]
  - PRURITUS GENERALISED [None]
  - SKIN DISORDER [None]
  - SKIN FIBROSIS [None]
  - SKIN HYPERPIGMENTATION [None]
  - SKIN INDURATION [None]
